FAERS Safety Report 8249428-2 (Version None)
Quarter: 2012Q1

REPORT INFORMATION
  Report Type: 
  Country: None (occurrence: None)
  Receive Date: 20120327
  Receipt Date: 20120307
  Transmission Date: 20120608
  Serious: Yes (Other)
  Sender: FDA-Public Use
  Company Number: 2012PROUSA01035

PATIENT
  Age: 67 Year
  Sex: Male
  Weight: 106.1 kg

DRUGS (3)
  1. BENADRYL [Concomitant]
  2. TYLENOL /00020001/ (PARACETAMOL) [Concomitant]
  3. PROVENGE [Suspect]
     Indication: PROSTATE CANCER METASTATIC
     Dosage: 250 ML, SINGLE, INTRAVENOUS
     Route: 042
     Dates: start: 20120203, end: 20120203

REACTIONS (2)
  - SYNCOPE [None]
  - BLOOD PRESSURE DECREASED [None]
